FAERS Safety Report 9411090 (Version 5)
Quarter: 2014Q1

REPORT INFORMATION
  Report Type: Report from Study
  Country: BR (occurrence: BR)
  Receive Date: 20130720
  Receipt Date: 20140218
  Transmission Date: 20141002
  Serious: Yes (Other)
  Sender: FDA-Public Use
  Company Number: BR-US-EMD SERONO, INC.-7224543

PATIENT
  Age: 49 Year
  Sex: Female

DRUGS (12)
  1. REBIF [Suspect]
     Indication: SECONDARY PROGRESSIVE MULTIPLE SCLEROSIS
     Dates: start: 20130506, end: 20131220
  2. RIVOTRIL [Concomitant]
     Indication: PRODUCT USED FOR UNKNOWN INDICATION
  3. DIAZEPAN                           /00762201/ [Concomitant]
     Indication: PRODUCT USED FOR UNKNOWN INDICATION
  4. POLIVITAMINICO [Concomitant]
     Indication: MULTIPLE SCLEROSIS
  5. BACLOFEN [Concomitant]
     Indication: MULTIPLE SCLEROSIS
  6. DIPYRONE [Concomitant]
     Indication: PRODUCT USED FOR UNKNOWN INDICATION
  7. CERAZETTE                          /00754001/ [Concomitant]
     Indication: MENSTRUAL DISORDER
  8. VENLAFAXINE [Concomitant]
     Indication: DEPRESSION
  9. CLONAZEPAM [Concomitant]
     Indication: MULTIPLE SCLEROSIS
  10. COMPLEX B                          /00653501/ [Concomitant]
     Indication: MULTIPLE SCLEROSIS
     Dosage: RIBOFLAVIN 100MG/PIRIDOXIN 10MG
  11. VITAMIN C                          /00008001/ [Concomitant]
     Indication: MULTIPLE SCLEROSIS
  12. QUETIAPINE [Concomitant]
     Indication: DEPRESSION

REACTIONS (10)
  - Cyanosis central [Recovered/Resolved]
  - Dyspnoea [Recovered/Resolved]
  - Bruxism [Recovered/Resolved]
  - Tremor [Recovered/Resolved]
  - Muscle spasms [Not Recovered/Not Resolved]
  - Musculoskeletal stiffness [Not Recovered/Not Resolved]
  - Insomnia [Recovered/Resolved]
  - Skin odour abnormal [Recovered/Resolved]
  - Pain [Recovered/Resolved]
  - Off label use [Unknown]
